FAERS Safety Report 13049393 (Version 4)
Quarter: 2017Q2

REPORT INFORMATION
  Report Type: Spontaneous
  Country: GB (occurrence: GB)
  Receive Date: 20161221
  Receipt Date: 20170426
  Transmission Date: 20170830
  Serious: Yes (Other)
  Sender: FDA-Public Use
  Company Number: GB-VELOXIS PHARMACEUTICALS-1061073

PATIENT
  Age: 22 Year
  Sex: Female

DRUGS (10)
  1. ENVARSUS XR [Suspect]
     Active Substance: TACROLIMUS
     Indication: LIVER TRANSPLANT
     Dates: start: 20160630
  2. AZATHIOPRINE. [Suspect]
     Active Substance: AZATHIOPRINE
  3. AMLODIPINE [Concomitant]
     Active Substance: AMLODIPINE BESYLATE
  4. METFORMIN [Concomitant]
     Active Substance: METFORMIN HYDROCHLORIDE
  5. FERROUS SULFATE. [Concomitant]
     Active Substance: FERROUS SULFATE
  6. ENVARSUS XR [Suspect]
     Active Substance: TACROLIMUS
     Dates: start: 20160825
  7. PREDNISOLONE. [Suspect]
     Active Substance: PREDNISOLONE
     Dates: start: 201301
  8. AZATHIOPRINE. [Suspect]
     Active Substance: AZATHIOPRINE
     Dates: start: 20160419
  9. PREDNISOLONE. [Suspect]
     Active Substance: PREDNISOLONE
     Route: 048
  10. COLECALCIFEROL [Concomitant]
     Active Substance: CHOLECALCIFEROL

REACTIONS (2)
  - Liver transplant rejection [Recovering/Resolving]
  - Treatment noncompliance [Unknown]

NARRATIVE: CASE EVENT DATE: 20161130
